FAERS Safety Report 10557864 (Version 2)
Quarter: 2014Q4

REPORT INFORMATION
  Report Type: Spontaneous
  Country: IT (occurrence: None)
  Receive Date: 20141029
  Receipt Date: 20141107
  Transmission Date: 20150529
  Serious: Yes (Other)
  Sender: FDA-Public Use
  Company Number: KAD201410-001313

PATIENT
  Age: 58 Year
  Sex: Male

DRUGS (8)
  1. DOXAZOSIN (DOXAZOSIN) (DOXAZOSIN) [Concomitant]
  2. SPIRONOLACTONE (SPIRONOLACTONE) (SPIRONOLACTONE) [Concomitant]
     Active Substance: SPIRONOLACTONE
  3. RIBAVIRIN. [Suspect]
     Active Substance: RIBAVIRIN
     Indication: HEPATITIS C
  4. PEGINTERFERON ALFA-2A [Suspect]
     Active Substance: PEGINTERFERON ALFA-2A
     Indication: HEPATITIS C
     Dosage: 180 MCG/WEEK
     Dates: start: 201009, end: 201012
  5. REPAGLINIDE (REPAGLINIDE) (REPAGLINIDE) [Concomitant]
  6. PEGINTERFERON ALFA-2B [Suspect]
     Active Substance: PEGINTERFERON ALFA-2B
     Indication: HEPATITIS C
     Dosage: 1.5 MCG/KG/WEEK
  7. RANITIDINE (RANITIDINE) (RANITIDINE) [Concomitant]
  8. NIFEDIPINE (NIFEDIPINE) (NIFEDIPINE) [Concomitant]
     Active Substance: NIFEDIPINE

REACTIONS (4)
  - Proteinuria [None]
  - Glomerulonephritis membranoproliferative [None]
  - No therapeutic response [None]
  - Urinary tract disorder [None]
